FAERS Safety Report 4349302-8 (Version None)
Quarter: 2004Q2

REPORT INFORMATION
  Report Type: 
  Country: None (occurrence: None)
  Receive Date: 20040426
  Receipt Date: 20040412
  Transmission Date: 20050107
  Serious: Yes (Hospitalization)
  Sender: FDA-Public Use
  Company Number: FABR-10538

PATIENT
  Age: 48 Year
  Sex: Female
  Weight: 71 kg

DRUGS (6)
  1. FABRAZYME [Suspect]
     Indication: FABRY'S DISEASE
     Dosage: 70 MG IV
     Route: 042
     Dates: start: 20031118
  2. ZOLOFT [Concomitant]
  3. CARTIA [Concomitant]
  4. MAVIK [Concomitant]
  5. TOPAMAX [Concomitant]
  6. ANTICOAGULATION THERAPY (UNSPECIFIED) [Concomitant]

REACTIONS (3)
  - ATRIAL FIBRILLATION [None]
  - DISEASE RECURRENCE [None]
  - DYSPNOEA [None]
